FAERS Safety Report 5765060-4 (Version None)
Quarter: 2008Q2

REPORT INFORMATION
  Report Type: 
  Country: None (occurrence: None)
  Receive Date: 20080606
  Receipt Date: 20080606
  Transmission Date: 20081010
  Serious: Yes (Hospitalization)
  Sender: FDA-Public Use
  Company Number: None

PATIENT
  Age: 91 Year
  Sex: Female
  Weight: 47.1741 kg

DRUGS (8)
  1. BONIVA [Suspect]
     Indication: OSTEOPOROSIS
     Dosage: 3MG IV
     Route: 042
  2. METHIMAZOLE [Concomitant]
  3. AMLODIPINE [Concomitant]
  4. PEPCID [Concomitant]
  5. PRAVACHOL [Concomitant]
  6. OXYCODONE HCL [Concomitant]
  7. COREG [Concomitant]
  8. PLAVIX [Concomitant]

REACTIONS (4)
  - ATRIOVENTRICULAR BLOCK [None]
  - CARDIAC FAILURE CONGESTIVE [None]
  - DIZZINESS [None]
  - MALAISE [None]
